FAERS Safety Report 7179776-9 (Version None)
Quarter: 2010Q4

REPORT INFORMATION
  Report Type: 
  Country: None (occurrence: None)
  Receive Date: 20101221
  Receipt Date: 20101217
  Transmission Date: 20110411
  Serious: Yes (Hospitalization)
  Sender: FDA-Public Use
  Company Number: FR-ROCHE-748802

PATIENT
  Sex: Male

DRUGS (9)
  1. CYMEVAN [Suspect]
     Route: 042
     Dates: start: 20101122
  2. BACTRIM [Suspect]
     Route: 048
     Dates: start: 20101124, end: 20101207
  3. CELLCEPT [Suspect]
     Route: 048
     Dates: start: 20101110, end: 20101207
  4. CORDARONE [Suspect]
     Route: 048
     Dates: start: 20101121, end: 20101207
  5. TAHOR [Suspect]
     Route: 048
     Dates: start: 20101115, end: 20101205
  6. LASIX [Suspect]
     Dosage: DRUG REPORTED AS LASILIX SPECIAL 500 MG
     Route: 048
     Dates: start: 20101120, end: 20101207
  7. PREDNISONE [Suspect]
     Route: 048
     Dates: start: 20101110
  8. NEXIUM [Suspect]
     Route: 048
     Dates: start: 20101115
  9. SANDIMMUNE [Suspect]
     Route: 048
     Dates: start: 20101110

REACTIONS (1)
  - CYTOLYTIC HEPATITIS [None]
